FAERS Safety Report 12301765 (Version 4)
Quarter: 2016Q3

REPORT INFORMATION
  Report Type: Report from Study
  Country: IL (occurrence: IL)
  Receive Date: 20160425
  Receipt Date: 20160920
  Transmission Date: 20161109
  Serious: Yes (Other)
  Sender: FDA-Public Use
  Company Number: IL-AMGEN-ISRNI2016052108

PATIENT
  Sex: Male

DRUGS (1)
  1. AMG 145 [Suspect]
     Active Substance: EVOLOCUMAB
     Indication: PRODUCT USED FOR UNKNOWN INDICATION
     Dosage: UNK
     Route: 065

REACTIONS (5)
  - Fatigue [Unknown]
  - Oropharyngeal pain [Unknown]
  - Respiratory tract infection [Unknown]
  - Influenza like illness [Unknown]
  - Rhinorrhoea [Unknown]
